FAERS Safety Report 15356506 (Version 1)
Quarter: 2018Q3

REPORT INFORMATION
  Report Type: Spontaneous
  Country: US (occurrence: US)
  Receive Date: 20180906
  Receipt Date: 20180906
  Transmission Date: 20181010
  Serious: No
  Sender: FDA-Public Use
  Company Number: US-IPSEN BIOPHARMACEUTICALS, INC.-2018-13000

PATIENT
  Age: 59 Year
  Sex: Male

DRUGS (14)
  1. MUCINEX [Concomitant]
     Active Substance: GUAIFENESIN
  2. XOPENEX [Concomitant]
     Active Substance: LEVALBUTEROL HYDROCHLORIDE
  3. PANTOPRAZOLE SODIUM. [Concomitant]
     Active Substance: PANTOPRAZOLE SODIUM
  4. TESSALON [Concomitant]
     Active Substance: BENZONATATE
  5. CLARITIN [Concomitant]
     Active Substance: LORATADINE
  6. XERMELO [Suspect]
     Active Substance: TELOTRISTAT ETHYL
     Route: 048
     Dates: start: 20180821
  7. ASTELIN [Concomitant]
     Active Substance: AZELASTINE HYDROCHLORIDE
  8. XERMELO [Suspect]
     Active Substance: TELOTRISTAT ETHYL
     Indication: CARCINOID SYNDROME
     Route: 048
     Dates: start: 20180803, end: 20180821
  9. SINGULAIR [Concomitant]
     Active Substance: MONTELUKAST SODIUM
  10. FLONASE [Concomitant]
     Active Substance: FLUTICASONE PROPIONATE
  11. DILTIAZEM. [Concomitant]
     Active Substance: DILTIAZEM
  12. LEVSIN [Concomitant]
     Active Substance: HYOSCYAMINE SULFATE
  13. SOMATULINE [Suspect]
     Active Substance: LANREOTIDE ACETATE
     Indication: PRODUCT USED FOR UNKNOWN INDICATION
     Dosage: NOT REPORTED
     Route: 065
  14. ASMANEX [Concomitant]
     Active Substance: MOMETASONE FUROATE

REACTIONS (1)
  - Rash [Recovering/Resolving]

NARRATIVE: CASE EVENT DATE: 20180804
